FAERS Safety Report 6340255-X (Version None)
Quarter: 2009Q3

REPORT INFORMATION
  Report Type: 
  Country: None (occurrence: None)
  Receive Date: 20090902
  Receipt Date: 20090819
  Transmission Date: 20100115
  Serious: Yes (Hospitalization)
  Sender: FDA-Public Use
  Company Number: 230112K09IRL

PATIENT
  Age: 57 Year
  Sex: Male

DRUGS (6)
  1. REBIF [Suspect]
     Indication: MULTIPLE SCLEROSIS
     Dosage: 22 MCG
     Dates: start: 20030321, end: 20090714
  2. ALFUZOSIN (ALFUZOSIN) [Concomitant]
  3. ASPIRIN [Concomitant]
  4. PROCORALAN (IVABRADINE) (ANTIARRHYTHMICS, CLASS I AND III) [Concomitant]
  5. VELANFAXINE (VENLANFAXINE) [Concomitant]
  6. PROVIGIL [Concomitant]

REACTIONS (3)
  - DISEASE PROGRESSION [None]
  - LOWER RESPIRATORY TRACT INFECTION [None]
  - MULTIPLE SCLEROSIS [None]
